FAERS Safety Report 9935388 (Version 4)
Quarter: 2014Q2

REPORT INFORMATION
  Report Type: Spontaneous
  Country: US (occurrence: US)
  Receive Date: 20140228
  Receipt Date: 20140627
  Transmission Date: 20141212
  Serious: Yes (Other)
  Sender: FDA-Public Use
  Company Number: US-PFIZER INC-2014055748

PATIENT
  Age: 69 Year
  Sex: Male
  Weight: 85.71 kg

DRUGS (3)
  1. SUTENT [Suspect]
     Indication: RENAL CANCER
     Dosage: 50 MG DAILY, CYCLIC (4 WEEKS ON, 2 WEEKS OFF)
     Route: 048
     Dates: start: 20120207
  2. SUTENT [Suspect]
     Dosage: 37.5 MG DAILY, CYCLIC (3 WEEKS ON 1 WEEK OFF)
     Route: 048
     Dates: start: 20130628
  3. SUTENT [Suspect]
     Dosage: 50 MG, 1X/DAY
     Route: 048
     Dates: start: 20140326

REACTIONS (6)
  - Diarrhoea [Unknown]
  - Fatigue [Unknown]
  - Ageusia [Unknown]
  - Blood pressure increased [Unknown]
  - Decreased appetite [Unknown]
  - Lower limb fracture [Unknown]
